FAERS Safety Report 7935288 (Version 2)
Quarter: 2013Q3

REPORT INFORMATION
  Report Type: Report from Study
  Country: US (occurrence: US)
  Receive Date: 20110509
  Receipt Date: 20130715
  Transmission Date: 20140515
  Serious: Yes (Hospitalization)
  Sender: FDA-Public Use
  Company Number: US-BRISTOL-MYERS SQUIBB COMPANY-15684079

PATIENT
  Age: 68 Year
  Sex: Female

DRUGS (5)
  1. METFORMIN HCL [Suspect]
     Indication: TYPE 2 DIABETES MELLITUS
     Dosage: UNK-16FEB11?16FEB11-ONG
  2. NOVOLIN 70/30 [Suspect]
     Indication: TYPE 2 DIABETES MELLITUS
     Dosage: UNK-27OCT11?28OCT11-6JAN11?7JAN11-16FEB11?16FEB11-ONG
  3. PLACEBO [Suspect]
     Indication: TYPE 2 DIABETES MELLITUS
     Dates: start: 20101013
  4. ASPIRIN [Concomitant]
     Dosage: 1DF=}100MG OR {100MG
  5. NITRATES [Concomitant]

REACTIONS (3)
  - Pancreatitis [Unknown]
  - Non-cardiac chest pain [Recovered/Resolved]
  - Abdominal pain [Not Recovered/Not Resolved]
